FAERS Safety Report 14069220 (Version 1)
Quarter: 2017Q4

REPORT INFORMATION
  Report Type: Spontaneous
  Country: FR (occurrence: FR)
  Receive Date: 20171010
  Receipt Date: 20171010
  Transmission Date: 20180321
  Serious: Yes (Hospitalization)
  Sender: FDA-Public Use
  Company Number: FR-APOTEX-2017AP019689

PATIENT
  Age: 53 Year
  Sex: Male

DRUGS (4)
  1. WAKIX [Suspect]
     Active Substance: PITOLISANT HYDROCHLORIDE
     Indication: NARCOLEPSY
     Dosage: UNK
     Route: 048
     Dates: start: 201702, end: 20170810
  2. MODIODAL [Concomitant]
     Active Substance: MODAFINIL
     Indication: CATAPLEXY
  3. DEROXAT [Suspect]
     Active Substance: PAROXETINE HYDROCHLORIDE
     Indication: PRODUCT USED FOR UNKNOWN INDICATION
     Dosage: UNK
     Route: 048
     Dates: start: 201702, end: 20170810
  4. MODIODAL [Concomitant]
     Active Substance: MODAFINIL
     Indication: NARCOLEPSY
     Dosage: UNK
     Route: 065

REACTIONS (3)
  - Mania [Recovering/Resolving]
  - Euphoric mood [Not Recovered/Not Resolved]
  - Hypomania [Not Recovered/Not Resolved]

NARRATIVE: CASE EVENT DATE: 201703
